FAERS Safety Report 6362040-5 (Version None)
Quarter: 2009Q3

REPORT INFORMATION
  Report Type: 
  Country: None (occurrence: None)
  Receive Date: 20090918
  Receipt Date: 20090909
  Transmission Date: 20100115
  Serious: Yes (Other)
  Sender: FDA-Public Use
  Company Number: US-ABBOTT-09P-163-0596370-00

PATIENT
  Sex: Female

DRUGS (7)
  1. HUMIRA [Suspect]
     Indication: RHEUMATOID ARTHRITIS
     Dates: start: 20041101
  2. METOPROLOL TARTRATE [Concomitant]
     Indication: ATRIAL FIBRILLATION
  3. METHOTREXATE [Concomitant]
     Indication: RHEUMATOID ARTHRITIS
  4. FOLIC ACID [Concomitant]
     Indication: RHEUMATOID ARTHRITIS
  5. VITAMIN A [Concomitant]
     Indication: ROUTINE HEALTH MAINTENANCE
  6. ASPIRIN [Concomitant]
     Indication: DRUG USE FOR UNKNOWN INDICATION
  7. VITAMIN D [Concomitant]
     Indication: ROUTINE HEALTH MAINTENANCE

REACTIONS (6)
  - ATRIAL FIBRILLATION [None]
  - EYE HAEMORRHAGE [None]
  - LOSS OF CONSCIOUSNESS [None]
  - MACULAR DEGENERATION [None]
  - THROMBOSIS [None]
  - VISUAL ACUITY REDUCED [None]
